FAERS Safety Report 11173709 (Version 33)
Quarter: 2017Q2

REPORT INFORMATION
  Report Type: Report from Study
  Country: AT (occurrence: AT)
  Receive Date: 20150609
  Receipt Date: 20170605
  Transmission Date: 20170829
  Serious: Yes (Death, Hospitalization, Other)
  Sender: FDA-Public Use
  Company Number: PHHY2014AT040944

PATIENT
  Age: 81 Year
  Sex: Male
  Weight: 82 kg

DRUGS (28)
  1. JAKAVI [Suspect]
     Active Substance: RUXOLITINIB
     Indication: PRIMARY MYELOFIBROSIS
     Dosage: 10 MG, QD
     Route: 048
     Dates: start: 20130603, end: 20140122
  2. DANCOR [Concomitant]
     Active Substance: NICORANDIL
     Indication: PRODUCT USED FOR UNKNOWN INDICATION
     Dosage: 20 MG, BID (1-0-1)
     Route: 065
  3. JAKAVI [Suspect]
     Active Substance: RUXOLITINIB
     Dosage: UNK
     Route: 048
     Dates: start: 20140217
  4. CASODEX [Concomitant]
     Active Substance: BICALUTAMIDE
     Indication: PROSTATE CANCER METASTATIC
     Route: 065
  5. PLAVIX [Concomitant]
     Active Substance: CLOPIDOGREL BISULFATE
     Indication: ACUTE MYOCARDIAL INFARCTION
     Dosage: 75 MG, QD 1-0-0
     Route: 065
  6. SIMVASTATIN. [Concomitant]
     Active Substance: SIMVASTATIN
     Indication: PRODUCT USED FOR UNKNOWN INDICATION
     Dosage: 40 MG, QD (1-0-0)
     Route: 065
  7. CLOPIDOGREL [Concomitant]
     Active Substance: CLOPIDOGREL BISULFATE
     Indication: PRODUCT USED FOR UNKNOWN INDICATION
     Dosage: 1 DF, QD (1-0-0)
     Route: 065
  8. SPIRIVA [Concomitant]
     Active Substance: TIOTROPIUM BROMIDE MONOHYDRATE
     Dosage: 2 DF, BID (2-0-2)
     Route: 065
  9. CITALOPRAM [Concomitant]
     Active Substance: CITALOPRAM HYDROBROMIDE
     Indication: PRODUCT USED FOR UNKNOWN INDICATION
     Route: 065
  10. MOLSIDOLAT [Concomitant]
     Indication: PRODUCT USED FOR UNKNOWN INDICATION
     Dosage: 0.5 DF, BID (0.5-0-0.5)
     Route: 065
  11. MOLSIDOLAT [Concomitant]
     Dosage: 4 MG, 1/2-0-1/2
     Route: 065
  12. JAKAVI [Suspect]
     Active Substance: RUXOLITINIB
     Dosage: 5 MG, QD
     Route: 048
     Dates: start: 20140811
  13. JAKAVI [Suspect]
     Active Substance: RUXOLITINIB
     Dosage: 10 MG, QD
     Route: 048
     Dates: start: 20141201, end: 20170509
  14. PANTOLOC [Concomitant]
     Active Substance: PANTOPRAZOLE SODIUM
     Indication: PRODUCT USED FOR UNKNOWN INDICATION
     Dosage: 40 MG, QD (1-0-0)
     Route: 065
  15. SIMVASTATIN. [Concomitant]
     Active Substance: SIMVASTATIN
     Dosage: (1/2-0-0) QD
     Route: 065
  16. ZOMETA [Suspect]
     Active Substance: ZOLEDRONIC ACID
     Indication: PROSTATE CANCER
     Dosage: UNK
     Route: 065
     Dates: start: 20090425, end: 2009
  17. ZOLADEX [Concomitant]
     Active Substance: GOSERELIN ACETATE
     Indication: PROSTATE CANCER METASTATIC
     Dosage: 3.6 OT, EVERY 3 MONTHS
     Route: 065
  18. NOVORAPID [Concomitant]
     Active Substance: INSULIN ASPART
     Indication: PRODUCT USED FOR UNKNOWN INDICATION
     Dosage: UNK UNK, PRN
     Route: 058
  19. JAKAVI [Suspect]
     Active Substance: RUXOLITINIB
     Dosage: 10 MG, UNK
     Route: 048
     Dates: start: 20140526
  20. CONCOR [Concomitant]
     Active Substance: BISOPROLOL FUMARATE
     Indication: PRODUCT USED FOR UNKNOWN INDICATION
     Route: 065
  21. PANTOLOC [Concomitant]
     Active Substance: PANTOPRAZOLE SODIUM
     Dosage: 1 DF, QD
     Route: 065
  22. LASIX [Concomitant]
     Active Substance: FUROSEMIDE
     Indication: DYSPNOEA
     Dosage: QD (1/2-0-0)
     Route: 065
  23. SPIRIVA [Concomitant]
     Active Substance: TIOTROPIUM BROMIDE MONOHYDRATE
     Indication: PRODUCT USED FOR UNKNOWN INDICATION
     Dosage: 2.5 UG, QD (2-0-0)
     Route: 065
  24. JAKAVI [Suspect]
     Active Substance: RUXOLITINIB
     Dosage: 10 MG, QD
     Route: 048
     Dates: start: 20140827
  25. ACEMIN [Suspect]
     Active Substance: LISINOPRIL
     Indication: HYPERTENSION
     Route: 065
  26. LASIX [Concomitant]
     Active Substance: FUROSEMIDE
     Indication: WEIGHT CONTROL
     Dosage: 20 MG, QD (1-0-0)
     Route: 065
  27. PRAM//CITALOPRAM HYDROBROMIDE [Concomitant]
     Indication: PRODUCT USED FOR UNKNOWN INDICATION
     Dosage: 20 MG, QD(1-0-0)
     Route: 065
  28. MAXI-KALZ [Concomitant]
     Indication: PRODUCT USED FOR UNKNOWN INDICATION
     Dosage: UNK UNK, QD (1-0-0)
     Route: 065

REACTIONS (37)
  - Aplastic anaemia [Recovered/Resolved]
  - Anaemia [Recovered/Resolved]
  - General physical health deterioration [Unknown]
  - Oedema peripheral [Unknown]
  - Blood glucose increased [Unknown]
  - Obesity [Unknown]
  - Infection [Recovered/Resolved]
  - Platelet count decreased [Recovered/Resolved]
  - Dyspnoea exertional [Unknown]
  - Somnolence [Unknown]
  - General physical health deterioration [Recovered/Resolved with Sequelae]
  - Anaemia [Recovered/Resolved]
  - Splenomegaly [Unknown]
  - Pyrexia [Recovered/Resolved]
  - General physical health deterioration [Recovered/Resolved with Sequelae]
  - Left ventricular hypertrophy [Unknown]
  - Tachycardia [Unknown]
  - Transferrin decreased [Unknown]
  - Pain in extremity [Not Recovered/Not Resolved]
  - Nausea [Unknown]
  - Osteitis [Recovered/Resolved]
  - Dyspnoea exertional [Recovered/Resolved with Sequelae]
  - Syncope [Unknown]
  - Thrombocytopenia [Unknown]
  - Blood lactate dehydrogenase increased [Unknown]
  - Pallor [Unknown]
  - Blood pressure decreased [Unknown]
  - Rales [Unknown]
  - Platelet count decreased [Recovered/Resolved]
  - Death [Fatal]
  - Anaemia [Recovered/Resolved]
  - Fatigue [Recovered/Resolved with Sequelae]
  - Anaemia [Recovered/Resolved]
  - Acute myocardial infarction [Recovered/Resolved]
  - Prostate cancer recurrent [Not Recovered/Not Resolved]
  - Hyperhidrosis [Unknown]
  - Platelet anisocytosis [Unknown]

NARRATIVE: CASE EVENT DATE: 20140319
